APPROVED DRUG PRODUCT: DEXTROSE 60%
Active Ingredient: DEXTROSE
Strength: 60GM/100ML
Dosage Form/Route: INJECTABLE;INJECTION
Application: N017995 | Product #002
Applicant: B BRAUN MEDICAL INC
Approved: Sep 22, 1982 | RLD: No | RS: No | Type: DISCN